FAERS Safety Report 5691174-3 (Version None)
Quarter: 2008Q2

REPORT INFORMATION
  Report Type: 
  Country: None (occurrence: None)
  Receive Date: 20080402
  Receipt Date: 20080324
  Transmission Date: 20081010
  Serious: Yes (Other)
  Sender: FDA-Public Use
  Company Number: US-BAYER-US-2007-024663

PATIENT
  Age: 26 Year
  Sex: Female
  Weight: 58 kg

DRUGS (3)
  1. MIRENA [Suspect]
     Indication: CONTRACEPTION
     Route: 015
     Dates: start: 20070401, end: 20080323
  2. CELEXA [Concomitant]
     Indication: DEPRESSION
     Dosage: UNIT DOSE: 20 MG
     Route: 048
     Dates: start: 20010101
  3. XANAX [Concomitant]
     Indication: ANXIETY
     Dosage: UNIT DOSE: 2 MG
     Route: 048
     Dates: start: 20060101

REACTIONS (9)
  - ABDOMINAL DISTENSION [None]
  - ABDOMINAL PAIN UPPER [None]
  - ALOPECIA [None]
  - AMENORRHOEA [None]
  - GENITAL HAEMORRHAGE [None]
  - INTRA-UTERINE CONTRACEPTIVE DEVICE EXPELLED [None]
  - IUCD COMPLICATION [None]
  - PREGNANCY WITH CONTRACEPTIVE DEVICE [None]
  - SYNCOPE [None]
